FAERS Safety Report 25387806 (Version 1)
Quarter: 2025Q2

REPORT INFORMATION
  Report Type: Report from Study
  Country: PL (occurrence: PL)
  Receive Date: 20250603
  Receipt Date: 20250603
  Transmission Date: 20250716
  Serious: Yes (Other)
  Sender: AUROBINDO
  Company Number: PL-Orion Corporation ORION PHARMA-PARO2021-0004

PATIENT
  Age: 66 Year
  Sex: Female

DRUGS (2)
  1. PAROXETINE [Suspect]
     Active Substance: PAROXETINE
     Indication: Bipolar II disorder
     Route: 065
  2. LITHIUM [Suspect]
     Active Substance: LITHIUM
     Indication: Bipolar II disorder
     Dosage: 500 MILLIGRAM, ONCE A DAY
     Route: 065
     Dates: start: 2018

REACTIONS (1)
  - COVID-19 [Unknown]
